FAERS Safety Report 6370453-0 (Version None)
Quarter: 2009Q3

REPORT INFORMATION
  Report Type: 
  Country: None (occurrence: None)
  Receive Date: 20090923
  Receipt Date: 20090915
  Transmission Date: 20100115
  Serious: Yes (Death)
  Sender: FDA-Public Use
  Company Number: CN-BRACCO-000087

PATIENT
  Sex: Male

DRUGS (12)
  1. IOPAMIDOL [Suspect]
     Indication: HEPATIC EMBOLISATION
     Route: 042
     Dates: start: 20090623, end: 20090623
  2. IOPAMIDOL [Suspect]
     Indication: THERAPEUTIC EMBOLISATION
     Route: 013
     Dates: start: 20090623, end: 20090623
  3. IOPAMIDOL [Suspect]
     Indication: GASTROINTESTINAL HAEMORRHAGE
     Route: 042
     Dates: start: 20090623, end: 20090623
  4. IOPAMIDOL [Suspect]
     Indication: PORTAL HYPERTENSION
     Route: 042
     Dates: start: 20090623, end: 20090623
  5. IOPAMIDOL [Suspect]
     Indication: HEPATIC CIRRHOSIS
     Route: 042
     Dates: start: 20090623, end: 20090623
  6. IOPAMIDOL [Suspect]
     Route: 042
     Dates: start: 20090623, end: 20090623
  7. DEXAMETHASONE [Concomitant]
     Route: 065
  8. EPINEPHRINE [Concomitant]
     Route: 065
  9. DOPAMINE HCL [Concomitant]
     Route: 065
  10. ANTIINFLAMMATORY/ANTIRHEUMATIC PRODUCTS [Concomitant]
  11. ANTIHAEMORRHAGICS [Concomitant]
  12. GLUCOSE [Concomitant]

REACTIONS (1)
  - ANAPHYLACTIC SHOCK [None]
